FAERS Safety Report 5133107-4 (Version None)
Quarter: 2006Q4

REPORT INFORMATION
  Report Type: 
  Country: None (occurrence: None)
  Receive Date: 20061017
  Receipt Date: 20061002
  Transmission Date: 20070319
  Serious: Yes (Disabling)
  Sender: FDA-Public Use
  Company Number: 231075

PATIENT
  Age: 58 Year
  Sex: 0

DRUGS (5)
  1. TRASTUZUMAB(TRASTUZUMAB) PWDR + SOLVENT, INFUSION SOLN, 440MG [Suspect]
     Indication: BREAST CANCER
     Dosage: 4256 MG, INTRAVENOUS
     Route: 042
     Dates: start: 20040706, end: 20050202
  2. TAMOXIFEN CITRATE [Concomitant]
  3. DOXAZOSIN MESYLATE [Concomitant]
  4. ANASTROZOLE [Concomitant]
  5. AMLODIPINE BESYLATE [Concomitant]

REACTIONS (2)
  - DRY EYE [None]
  - HYPERSENSITIVITY [None]
